FAERS Safety Report 10407618 (Version 8)
Quarter: 2015Q2

REPORT INFORMATION
  Report Type: Spontaneous
  Country: US (occurrence: US)
  Receive Date: 20140825
  Receipt Date: 20150514
  Transmission Date: 20150821
  Serious: No
  Sender: FDA-Public Use
  Company Number: US-PFIZER INC-2014236195

PATIENT
  Age: 63 Year
  Sex: Male
  Weight: 74 kg

DRUGS (5)
  1. LEVEMIR [Concomitant]
     Active Substance: INSULIN DETEMIR
     Dosage: 12 UNITS IN MORNING IN 10 UNITS AT NIGHT
  2. EFFEXOR XR [Suspect]
     Active Substance: VENLAFAXINE HYDROCHLORIDE
     Indication: NEUROPATHY PERIPHERAL
     Dosage: 75 MG, 1X/DAY
  3. CAPECITABINE. [Concomitant]
     Active Substance: CAPECITABINE
     Dosage: 3000 MG, 2X/DAY
  4. NOVOLOG [Concomitant]
     Active Substance: INSULIN ASPART
     Indication: DIABETES MELLITUS
     Dosage: UNK
  5. EFFEXOR XR [Suspect]
     Active Substance: VENLAFAXINE HYDROCHLORIDE
     Indication: DIABETIC NEUROPATHY

REACTIONS (6)
  - Malaise [Unknown]
  - Therapeutic response unexpected [Unknown]
  - Product use issue [Unknown]
  - Pre-existing condition improved [Unknown]
  - Limb discomfort [Unknown]
  - Pain [Unknown]
